FAERS Safety Report 11394083 (Version 1)
Quarter: 2015Q3

REPORT INFORMATION
  Report Type: Report from Study
  Country: BR (occurrence: BR)
  Receive Date: 20150819
  Receipt Date: 20150819
  Transmission Date: 20151125
  Serious: Yes (Hospitalization, Other)
  Sender: FDA-Public Use
  Company Number: PHHY2015BR098250

PATIENT
  Sex: Female
  Weight: 58 kg

DRUGS (2)
  1. GILENYA [Suspect]
     Active Substance: FINGOLIMOD HYDROCHLORIDE
     Indication: MULTIPLE SCLEROSIS
     Dosage: 1 DF, QD
     Route: 065
     Dates: start: 201408, end: 201505
  2. TOPIRAMATE. [Concomitant]
     Active Substance: TOPIRAMATE
     Indication: HEADACHE
     Dosage: 50 MG, BID
     Route: 065

REACTIONS (4)
  - Multiple sclerosis relapse [Recovering/Resolving]
  - Eye pain [Unknown]
  - Neuromyelitis optica [Unknown]
  - Photophobia [Unknown]
